FAERS Safety Report 8815229 (Version 1)
Quarter: 2012Q4

REPORT INFORMATION
  Report Type: 
  Country: ES (occurrence: ES)
  Receive Date: 20120928
  Receipt Date: 20120928
  Transmission Date: 20130627
  Serious: Yes (Other)
  Sender: FDA-Public Use
  Company Number: ES-ROXANE LABORATORIES, INC.-2012-RO-01910RO

PATIENT
  Age: 21 Month
  Sex: Male

DRUGS (4)
  1. PREDNISONE [Suspect]
     Indication: NEPHROTIC SYNDROME
  2. ENALAPRIL [Suspect]
     Dosage: 20 mg
  3. ASPIRIN [Suspect]
     Dosage: 100 mg
  4. CICLOSPORIN [Suspect]
     Indication: NEPHROTIC SYNDROME

REACTIONS (6)
  - Drug ineffective [Unknown]
  - Oral candidiasis [Unknown]
  - Mucosal inflammation [Unknown]
  - Cushingoid [Unknown]
  - Epistaxis [Unknown]
  - Iron deficiency anaemia [Unknown]
